FAERS Safety Report 18911763 (Version 3)
Quarter: 2021Q1

REPORT INFORMATION
  Report Type: Report from Study
  Country: None (occurrence: BE)
  Receive Date: 20210218
  Receipt Date: 20210326
  Transmission Date: 20210420
  Serious: Yes (Other)
  Sender: FDA-Public Use
  Company Number: BE-BIOVITRUM-2020BE8116

PATIENT
  Age: 69 Year
  Sex: Male

DRUGS (8)
  1. CLEXANE [Concomitant]
     Active Substance: ENOXAPARIN SODIUM
     Dates: start: 20201026, end: 20201103
  2. CLEXANE [Concomitant]
     Active Substance: ENOXAPARIN SODIUM
     Dosage: AM DOSE
     Dates: start: 20201106, end: 20201108
  3. CLEXANE [Concomitant]
     Active Substance: ENOXAPARIN SODIUM
     Dates: start: 20201108
  4. ANAKINRA [Suspect]
     Active Substance: ANAKINRA
     Indication: COVID-19
     Dates: start: 20201027, end: 20201103
  5. TRASYLOL [Concomitant]
     Active Substance: APROTININ
     Dates: start: 20201026, end: 20201029
  6. CLEXANE [Concomitant]
     Active Substance: ENOXAPARIN SODIUM
     Dosage: AM DOSE
     Dates: start: 20201104, end: 20201106
  7. ANAKINRA [Suspect]
     Active Substance: ANAKINRA
     Indication: INFLAMMATION
  8. CLEXANE [Concomitant]
     Active Substance: ENOXAPARIN SODIUM
     Dosage: PM DOSE ON HOLD DUE TO HIGH FACTOR XA
     Dates: start: 20201103

REACTIONS (3)
  - Pulmonary embolism [Recovered/Resolved]
  - Shock [Recovered/Resolved]
  - Right ventricular failure [Recovered/Resolved]

NARRATIVE: CASE EVENT DATE: 20201108
